FAERS Safety Report 5150769-6 (Version None)
Quarter: 2006Q4

REPORT INFORMATION
  Report Type: 
  Country: None (occurrence: None)
  Receive Date: 20061108
  Receipt Date: 20061030
  Transmission Date: 20070319
  Serious: Yes (Life-Threatening, Hospitalization, Disabling, Other)
  Sender: FDA-Public Use
  Company Number: 2006EU002461

PATIENT
  Age: 57 Year
  Sex: Male
  Weight: 54 kg

DRUGS (13)
  1. PROGRAF [Suspect]
     Dosage: 3SEE IMAGE
     Route: 048
     Dates: start: 20060529, end: 20060807
  2. PROGRAF [Suspect]
     Dosage: 3SEE IMAGE
     Route: 048
     Dates: start: 20060808, end: 20060905
  3. BACTRIM DS [Suspect]
     Indication: PNEUMOCYSTIS JIROVECI PNEUMONIA
     Dosage: 1 DF, 3XWEEKLY, ORAL
     Route: 048
     Dates: end: 20060803
  4. ASPIRIN [Concomitant]
  5. OMEPRAZOLE [Concomitant]
  6. LASIX [Concomitant]
  7. CELLCEPT [Concomitant]
  8. CORTICOSTEROIDS [Concomitant]
  9. NOVONORM (REPAGLINIDE) [Concomitant]
  10. AMLODIPINE BESYLATE [Concomitant]
  11. ASPEGIC 1000 [Concomitant]
  12. CORTANCYL (PREDNISONE) [Concomitant]
  13. ZELITREX (VALCICLOVIR HYDROCHLORIDE) [Concomitant]

REACTIONS (29)
  - ASTHENIA [None]
  - BARRETT'S OESOPHAGUS [None]
  - BLOOD BICARBONATE DECREASED [None]
  - BLOOD PH INCREASED [None]
  - BRONCHOALVEOLAR LAVAGE ABNORMAL [None]
  - BRONCHOPNEUMOPATHY [None]
  - C-REACTIVE PROTEIN INCREASED [None]
  - DRUG EFFECT DECREASED [None]
  - DYSPNOEA [None]
  - HYPERTENSION [None]
  - HYPOVENTILATION [None]
  - HYPOXIA [None]
  - INFLAMMATION [None]
  - INTERSTITIAL LUNG DISEASE [None]
  - LABORATORY TEST ABNORMAL [None]
  - MUSCULOSKELETAL DISORDER [None]
  - OBLITERATIVE BRONCHIOLITIS [None]
  - OBSTRUCTIVE AIRWAYS DISORDER [None]
  - OVERDOSE [None]
  - PO2 DECREASED [None]
  - PRODUCTIVE COUGH [None]
  - PSEUDOMONAS INFECTION [None]
  - PULMONARY FUNCTION TEST ABNORMAL [None]
  - PULMONARY HYPERTENSION [None]
  - PURULENCE [None]
  - RALES [None]
  - RESPIRATORY DISTRESS [None]
  - RESPIRATORY RATE INCREASED [None]
  - TACHYCARDIA [None]
